FAERS Safety Report 11896864 (Version 1)
Quarter: 2016Q1

REPORT INFORMATION
  Report Type: Spontaneous
  Country: KR (occurrence: KR)
  Receive Date: 20160107
  Receipt Date: 20160107
  Transmission Date: 20160526
  Serious: Yes (Hospitalization, Other)
  Sender: FDA-Public Use
  Company Number: KR-GLAXOSMITHKLINE-KR2016GSK001745

PATIENT
  Age: 16 Year
  Sex: Female

DRUGS (2)
  1. LAMOTRIGINE. [Suspect]
     Active Substance: LAMOTRIGINE
     Indication: EPILEPSY
  2. LAMOTRIGINE. [Suspect]
     Active Substance: LAMOTRIGINE
     Indication: GENERALISED TONIC-CLONIC SEIZURE
     Dosage: 200 MG, UNK
     Route: 065
     Dates: start: 201301

REACTIONS (10)
  - Sexual abuse [Recovered/Resolved]
  - Amnesia [Recovered/Resolved]
  - Personality change [Recovered/Resolved]
  - Depressed mood [Recovered/Resolved]
  - Homicidal ideation [Recovered/Resolved]
  - Nightmare [Recovered/Resolved]
  - Flashback [Recovered/Resolved]
  - Depression [Recovered/Resolved]
  - Impatience [Recovered/Resolved]
  - Suicidal ideation [Recovered/Resolved]

NARRATIVE: CASE EVENT DATE: 201308
